FAERS Safety Report 18385012 (Version 1)
Quarter: 2020Q4

REPORT INFORMATION
  Report Type: Report from Study
  Country: US (occurrence: US)
  Receive Date: 20201015
  Receipt Date: 20201015
  Transmission Date: 20210114
  Serious: Yes (Other)
  Sender: FDA-Public Use
  Company Number: US-BEH-2020123353

PATIENT
  Age: 54 Year
  Sex: Female

DRUGS (3)
  1. HIZENTRA [Suspect]
     Active Substance: HUMAN IMMUNOGLOBULIN G
     Dosage: 10 GRAM, BIW
     Route: 058
  2. HIZENTRA [Suspect]
     Active Substance: HUMAN IMMUNOGLOBULIN G
     Indication: PRIMARY IMMUNODEFICIENCY SYNDROME
     Dosage: 20 GRAM, BIW
     Route: 050
     Dates: start: 20201005
  3. TYLENOL [Concomitant]
     Active Substance: ACETAMINOPHEN
     Indication: PREMEDICATION
     Dosage: 2 GRAM (AS ORDERED)
     Route: 065
     Dates: start: 202010

REACTIONS (10)
  - Headache [Not Recovered/Not Resolved]
  - Mast cell activation syndrome [Unknown]
  - Infusion site pain [Unknown]
  - Infusion site induration [Not Recovered/Not Resolved]
  - Infusion site warmth [Unknown]
  - Fatigue [Not Recovered/Not Resolved]
  - Infusion site swelling [Not Recovered/Not Resolved]
  - Infusion site rash [Unknown]
  - Infusion site erythema [Not Recovered/Not Resolved]
  - Infusion site vesicles [Unknown]

NARRATIVE: CASE EVENT DATE: 20201005
